FAERS Safety Report 7229084-2 (Version None)
Quarter: 2011Q1

REPORT INFORMATION
  Report Type: 
  Country: None (occurrence: None)
  Receive Date: 20110117
  Receipt Date: 20101123
  Transmission Date: 20110831
  Serious: Yes (Other)
  Sender: FDA-Public Use
  Company Number: US-NAPPMUNDI-USA-2010-0056220

PATIENT
  Sex: Male

DRUGS (1)
  1. OXYCONTIN [Suspect]
     Indication: PRODUCT USED FOR UNKNOWN INDICATION
     Dosage: UNK
     Dates: start: 19950801

REACTIONS (5)
  - MYOCARDIAL INFARCTION [None]
  - DIABETES MELLITUS [None]
  - DEPRESSION [None]
  - CARDIAC OPERATION [None]
  - DRUG DEPENDENCE [None]
